FAERS Safety Report 4813939-X (Version None)
Quarter: 2005Q4

REPORT INFORMATION
  Report Type: 
  Country: None (occurrence: None)
  Receive Date: 20051028
  Receipt Date: 20041008
  Transmission Date: 20060501
  Serious: No
  Sender: FDA-Public Use
  Company Number: US-GLAXOSMITHKLINE-A0529100A

PATIENT
  Age: 61 Year
  Sex: Male

DRUGS (6)
  1. SEREVENT [Suspect]
     Indication: LUNG INJURY
     Dosage: 1PUFF TWICE PER DAY
     Route: 055
     Dates: start: 20041002, end: 20041007
  2. PREDNISONE [Concomitant]
  3. ALBUTEROL [Concomitant]
  4. PULMICORT [Concomitant]
  5. VITAMINS [Concomitant]
  6. CELEBREX [Concomitant]

REACTIONS (3)
  - BRONCHOSPASM [None]
  - CHEST PAIN [None]
  - DYSPNOEA [None]
